FAERS Safety Report 8934219 (Version 1)
Quarter: 2012Q4

REPORT INFORMATION
  Report Type: 
  Country: US (occurrence: US)
  Receive Date: 20121129
  Receipt Date: 20121129
  Transmission Date: 20130627
  Serious: No
  Sender: FDA-Public Use
  Company Number: US-009507513-1211USA010717

PATIENT
  Age: 71 Year
  Sex: Female

DRUGS (5)
  1. CLARITIN [Suspect]
  2. XALATAN [Concomitant]
  3. LATANOPROST [Concomitant]
  4. TRAVATAN [Concomitant]
  5. CENTRUM (MINERALS (UNSPECIFIED) (+) VITAMINS (UNSPECIFIED)) [Concomitant]

REACTIONS (2)
  - Psychomotor hyperactivity [Unknown]
  - Insomnia [Unknown]
